FAERS Safety Report 8113466-0 (Version None)
Quarter: 2012Q1

REPORT INFORMATION
  Report Type: 
  Country: None (occurrence: None)
  Receive Date: 20120203
  Receipt Date: 20120201
  Transmission Date: 20120608
  Serious: Yes (Other)
  Sender: FDA-Public Use
  Company Number: BR-ABBOTT-09P-020-0612175-00

PATIENT
  Sex: Female
  Weight: 58 kg

DRUGS (4)
  1. UNKNOWN [Concomitant]
     Indication: ANGIOPATHY
  2. HUMIRA [Suspect]
     Indication: RHEUMATOID ARTHRITIS
     Route: 058
     Dates: start: 20080101
  3. METICORTEN [Concomitant]
     Indication: MUSCULOSKELETAL PAIN
     Route: 048
     Dates: start: 19900101
  4. UNKNOWN [Concomitant]
     Indication: BLOOD PRESSURE

REACTIONS (2)
  - VENOUS OCCLUSION [None]
  - WOUND [None]
